FAERS Safety Report 7593925-X (Version None)
Quarter: 2011Q3

REPORT INFORMATION
  Report Type: 
  Country: None (occurrence: None)
  Receive Date: 20110706
  Receipt Date: 20110624
  Transmission Date: 20111222
  Serious: Yes (Other)
  Sender: FDA-Public Use
  Company Number: JP-UCBSA-036107

PATIENT
  Age: 23 Year
  Sex: Male

DRUGS (6)
  1. KEPPRA [Suspect]
     Indication: EPILEPSY
     Route: 048
     Dates: start: 20110101, end: 20110101
  2. KEPPRA [Suspect]
     Route: 048
     Dates: start: 20110101, end: 20110616
  3. DEPAKENE [Concomitant]
     Route: 048
  4. KEPPRA [Suspect]
     Route: 048
     Dates: start: 20110617
  5. PHENOBARBITAL TAB [Concomitant]
     Route: 048
  6. VALPROATE SODIUM [Concomitant]
     Route: 048

REACTIONS (1)
  - STATUS EPILEPTICUS [None]
